FAERS Safety Report 21161077 (Version 27)
Quarter: 2025Q1

REPORT INFORMATION
  Report Type: Report from Study
  Country: US (occurrence: US)
  Receive Date: 20220802
  Receipt Date: 20250326
  Transmission Date: 20250408
  Serious: Yes (Death, Hospitalization, Other)
  Sender: TAKEDA
  Company Number: US-PAREXEL-2021-KAM-US003595

PATIENT
  Age: 69 Year
  Sex: Female
  Weight: 50.79 kg

DRUGS (47)
  1. GLASSIA [Suspect]
     Active Substance: .ALPHA.1-PROTEINASE INHIBITOR HUMAN
     Indication: Alpha-1 antitrypsin deficiency
     Dosage: UNK UNK, 1/WEEK
  2. GLASSIA [Suspect]
     Active Substance: .ALPHA.1-PROTEINASE INHIBITOR HUMAN
     Dosage: 60 MILLIGRAM/KILOGRAM, 1/WEEK
     Dates: start: 20210625
  3. GLASSIA [Suspect]
     Active Substance: .ALPHA.1-PROTEINASE INHIBITOR HUMAN
     Dosage: 60 MILLIGRAM/KILOGRAM, 1/WEEK
     Dates: start: 20210629
  4. ACETAMINOPHEN [Concomitant]
     Active Substance: ACETAMINOPHEN
  5. EPINEPHRINE [Concomitant]
     Active Substance: EPINEPHRINE
  6. XANAX [Concomitant]
     Active Substance: ALPRAZOLAM
  7. OXYCODONE HYDROCHLORIDE [Concomitant]
     Active Substance: OXYCODONE HYDROCHLORIDE
  8. HEPARIN [Concomitant]
     Active Substance: HEPARIN SODIUM
  9. SODIUM CHLORIDE [Concomitant]
     Active Substance: SODIUM CHLORIDE
  10. AMLODIPINE BESYLATE\BENAZEPRIL HYDROCHLORIDE [Concomitant]
     Active Substance: AMLODIPINE BESYLATE\BENAZEPRIL HYDROCHLORIDE
  11. LANTUS [Concomitant]
     Active Substance: INSULIN GLARGINE
  12. LIDOCAINE [Concomitant]
     Active Substance: LIDOCAINE
  13. NITROSTAT [Concomitant]
     Active Substance: NITROGLYCERIN
  14. CALCIUM\VITAMIN D [Concomitant]
     Active Substance: CALCIUM\VITAMIN D
  15. BELBUCA [Concomitant]
     Active Substance: BUPRENORPHINE HYDROCHLORIDE
  16. EFFEXOR [Concomitant]
     Active Substance: VENLAFAXINE HYDROCHLORIDE
  17. FLUTICASONE PROPIONATE [Concomitant]
     Active Substance: FLUTICASONE PROPIONATE
  18. MONTELUKAST SODIUM [Concomitant]
     Active Substance: MONTELUKAST SODIUM
  19. VITAMIN D3 [Concomitant]
     Active Substance: CHOLECALCIFEROL
  20. LACTULOSE [Concomitant]
     Active Substance: LACTULOSE
  21. DIPHENHYDRAMINE HYDROCHLORIDE [Concomitant]
     Active Substance: DIPHENHYDRAMINE HYDROCHLORIDE
  22. FUROSEMIDE [Concomitant]
     Active Substance: FUROSEMIDE
  23. PREDNISONE [Concomitant]
     Active Substance: PREDNISONE
  24. SPIRONOLACTONE [Concomitant]
     Active Substance: SPIRONOLACTONE
  25. OXYGEN [Concomitant]
     Active Substance: OXYGEN
  26. NOVOLOG [Concomitant]
     Active Substance: INSULIN ASPART
  27. ASPIRIN [Concomitant]
     Active Substance: ASPIRIN
  28. SUCRALFATE [Concomitant]
     Active Substance: SUCRALFATE
  29. ONDANSETRON HYDROCHLORIDE [Concomitant]
     Active Substance: ONDANSETRON HYDROCHLORIDE
  30. BENEFIBER [Concomitant]
     Active Substance: STARCH, WHEAT
  31. PREVACID [Concomitant]
     Active Substance: LANSOPRAZOLE
  32. TRAMADOL HCL [Concomitant]
     Active Substance: TRAMADOL HYDROCHLORIDE
  33. DICYCLOMINE [Concomitant]
     Active Substance: DICYCLOMINE HYDROCHLORIDE
  34. URSODIOL [Concomitant]
     Active Substance: URSODIOL
  35. PANTOPRAZOLE SODIUM [Concomitant]
     Active Substance: PANTOPRAZOLE SODIUM
  36. FERROUS SULFATE [Concomitant]
     Active Substance: FERROUS SULFATE
  37. BUDESONIDE [Concomitant]
     Active Substance: BUDESONIDE
  38. YUPELRI [Concomitant]
     Active Substance: REVEFENACIN
  39. ALBUTEROL\IPRATROPIUM [Concomitant]
     Active Substance: ALBUTEROL\IPRATROPIUM
  40. BROVANA [Concomitant]
     Active Substance: ARFORMOTEROL TARTRATE
  41. ALBUTEROL SULFATE [Concomitant]
     Active Substance: ALBUTEROL SULFATE
  42. LASIX [Concomitant]
     Active Substance: FUROSEMIDE
  43. DULERA [Concomitant]
     Active Substance: FORMOTEROL FUMARATE DIHYDRATE\MOMETASONE FUROATE
  44. ROSUVASTATIN CALCIUM [Concomitant]
     Active Substance: ROSUVASTATIN CALCIUM
  45. BACLOFEN [Concomitant]
     Active Substance: BACLOFEN
  46. LANSOPRAZOLE [Concomitant]
     Active Substance: LANSOPRAZOLE
  47. VENLAFAXINE HCL [Concomitant]
     Active Substance: VENLAFAXINE HYDROCHLORIDE

REACTIONS (38)
  - Death [Fatal]
  - Rectal haemorrhage [Unknown]
  - Cellulitis [Unknown]
  - Device related infection [Unknown]
  - Gastrointestinal haemorrhage [Unknown]
  - Respiratory disorder [Unknown]
  - Limb injury [Unknown]
  - Fall [Unknown]
  - Blood glucose decreased [Not Recovered/Not Resolved]
  - Head injury [Unknown]
  - Loss of consciousness [Unknown]
  - Abscess [Unknown]
  - Avian influenza [Unknown]
  - Pneumonia [Unknown]
  - Sepsis [Unknown]
  - Back pain [Unknown]
  - Limb mass [Not Recovered/Not Resolved]
  - Degenerative bone disease [Unknown]
  - Oropharyngeal pain [Unknown]
  - Infusion site haemorrhage [Unknown]
  - Infusion site mass [Unknown]
  - Wound [Unknown]
  - Localised infection [Unknown]
  - Wheezing [Unknown]
  - Pain [Not Recovered/Not Resolved]
  - Blood glucose fluctuation [Unknown]
  - Contusion [Unknown]
  - Skin laceration [Unknown]
  - Wrong technique in device usage process [Unknown]
  - Product dose omission issue [Unknown]
  - Pyrexia [Unknown]
  - Malaise [Unknown]
  - Oedema peripheral [Unknown]
  - Abdominal pain [Unknown]
  - Cough [Unknown]
  - Rash [Unknown]
  - Dyspnoea [Unknown]
  - Nausea [Unknown]

NARRATIVE: CASE EVENT DATE: 20250321
